FAERS Safety Report 19564019 (Version 1)
Quarter: 2021Q3

REPORT INFORMATION
  Report Type: Spontaneous
  Country: AU (occurrence: AU)
  Receive Date: 20210716
  Receipt Date: 20210716
  Transmission Date: 20211014
  Serious: Yes (Hospitalization, Other)
  Sender: FDA-Public Use
  Company Number: AU-009507513-2107AUS002893

PATIENT
  Age: 54 Year
  Sex: Female

DRUGS (7)
  1. LUTETIUM (177LU) DOTATATE [Suspect]
     Active Substance: LUTETIUM OXODOTREOTIDE LU-177
     Dosage: UNK
  2. SANDOSTATIN LAR DEPOT [Suspect]
     Active Substance: OCTREOTIDE ACETATE
     Dosage: 60 MILLIGRAM
     Route: 030
  3. TEMOZOLOMIDE. [Suspect]
     Active Substance: TEMOZOLOMIDE
     Dosage: UNK MILLIGRAM
  4. SANDOSTATIN LAR DEPOT [Suspect]
     Active Substance: OCTREOTIDE ACETATE
     Indication: CARCINOID SYNDROME
     Dosage: 30 MILLIGRAM
     Route: 030
     Dates: start: 20150824
  5. SANDOSTATIN LAR DEPOT [Suspect]
     Active Substance: OCTREOTIDE ACETATE
     Dosage: 30 MILLIGRAM
     Route: 030
  6. CAPECITABINE. [Suspect]
     Active Substance: CAPECITABINE
     Dosage: UNK
  7. SANDOSTATIN LAR DEPOT [Suspect]
     Active Substance: OCTREOTIDE ACETATE
     Dosage: 60 MILLIGRAM
     Route: 030

REACTIONS (11)
  - Tumour pain [Unknown]
  - Vomiting [Unknown]
  - Diarrhoea [Unknown]
  - Metastases to bone [Not Recovered/Not Resolved]
  - Arthralgia [Unknown]
  - Malignant neoplasm progression [Unknown]
  - Metastases to liver [Not Recovered/Not Resolved]
  - Underdose [Unknown]
  - Back pain [Unknown]
  - Inappropriate schedule of product administration [Unknown]
  - Muscular weakness [Unknown]
